FAERS Safety Report 8081691-3 (Version None)
Quarter: 2012Q1

REPORT INFORMATION
  Report Type: 
  Country: None (occurrence: None)
  Receive Date: 20120130
  Receipt Date: 20120123
  Transmission Date: 20120608
  Serious: Yes (Hospitalization)
  Sender: FDA-Public Use
  Company Number: PHEH2011US009920

PATIENT
  Sex: Female

DRUGS (9)
  1. TRICOR [Concomitant]
     Dosage: 48 MG, UNK
  2. TOPAMAX [Concomitant]
     Dosage: 200 MG, UNK
  3. SYNTHROID [Concomitant]
     Dosage: 75 UG, UNK
  4. LYRICA [Concomitant]
     Dosage: 300 MG, UNK
  5. GILENYA [Suspect]
     Indication: MULTIPLE SCLEROSIS
     Dosage: 0.5 MG, QD
     Route: 048
     Dates: start: 20111024, end: 20120123
  6. QUINAPRIL [Concomitant]
     Dosage: 20 MG, UNK
  7. XANAX [Concomitant]
     Dosage: 0.5 MG, UNK
  8. RESTORIL [Concomitant]
     Dosage: 30 MG, UNK
  9. ATENOLOL [Concomitant]
     Dosage: 100 MG, UNK

REACTIONS (7)
  - RASH GENERALISED [None]
  - PNEUMONIA [None]
  - PYREXIA [None]
  - EAR INFECTION [None]
  - OROPHARYNGEAL PAIN [None]
  - BRONCHITIS [None]
  - DYSPNOEA [None]
